FAERS Safety Report 4776391-9 (Version None)
Quarter: 2005Q3

REPORT INFORMATION
  Report Type: 
  Country: None (occurrence: None)
  Receive Date: 20050921
  Receipt Date: 20050908
  Transmission Date: 20060218
  Serious: Yes (Hospitalization)
  Sender: FDA-Public Use
  Company Number: FACT0500561

PATIENT
  Age: 35 Year
  Sex: Male

DRUGS (1)
  1. FACTIVE(GEMIFLOXACIN MESYLATE) TABLETS, 320MG [Suspect]
     Indication: RESPIRATORY TRACT INFECTION BACTERIAL
     Dosage: 320 MG, QD, ORAL
     Route: 048
     Dates: start: 20050705, end: 20050709

REACTIONS (3)
  - OEDEMA [None]
  - RASH MACULO-PAPULAR [None]
  - URTICARIA [None]
